FAERS Safety Report 7718395-X (Version None)
Quarter: 2011Q3

REPORT INFORMATION
  Report Type: 
  Country: None (occurrence: None)
  Receive Date: 20110824
  Receipt Date: 20110811
  Transmission Date: 20111222
  Serious: Yes (Death, Congenital Anomaly, Other)
  Sender: FDA-Public Use
  Company Number: DE-ACCORD-010108

PATIENT

DRUGS (2)
  1. MYCOPHENOLATE MOFETIL [Suspect]
  2. AZATHIOPRINE [Suspect]

REACTIONS (8)
  - CONGENITAL GENITOURINARY ABNORMALITY [None]
  - MICROPHTHALMOS [None]
  - CONGENITAL CARDIOVASCULAR ANOMALY [None]
  - MATERNAL EXPOSURE DURING PREGNANCY [None]
  - ABORTION INDUCED [None]
  - MACROSTOMIA [None]
  - LIMB MALFORMATION [None]
  - MANDIBULOFACIAL DYSOSTOSIS [None]
